FAERS Safety Report 4695057-7 (Version None)
Quarter: 2005Q2

REPORT INFORMATION
  Report Type: 
  Country: None (occurrence: None)
  Receive Date: 20050617
  Receipt Date: 20050606
  Transmission Date: 20051028
  Serious: Yes (Hospitalization)
  Sender: FDA-Public Use
  Company Number: 2005082071

PATIENT
  Age: 76 Year
  Sex: Male

DRUGS (4)
  1. LIPITOR [Suspect]
     Indication: HYPERCHOLESTEROLAEMIA
     Dosage: 10 MG, ORAL
     Route: 048
  2. BASEN (VOGLIBOSE) [Suspect]
     Indication: DIABETES MELLITUS
     Dosage: ORAL
     Route: 048
  3. KETAS (IBUDILAST) [Concomitant]
  4. TICLOPIDINE HCL [Concomitant]

REACTIONS (3)
  - AUTOIMMUNE DISORDER [None]
  - BILIARY CIRRHOSIS PRIMARY [None]
  - LIVER DISORDER [None]
